FAERS Safety Report 6284986-9 (Version None)
Quarter: 2009Q3

REPORT INFORMATION
  Report Type: 
  Country: None (occurrence: None)
  Receive Date: 20090727
  Receipt Date: 20090311
  Transmission Date: 20100115
  Serious: Yes (Other)
  Sender: FDA-Public Use
  Company Number: US-ABBOTT-09P-163-0561793-00

PATIENT
  Age: 49 Year
  Sex: Female

DRUGS (8)
  1. RITONAVIR SOFT GELATIN CAPSULES [Suspect]
     Indication: HIV INFECTION
  2. RITONAVIR SOFT GELATIN CAPSULES [Suspect]
     Dates: start: 20081226
  3. ETRAVIRINE [Suspect]
     Indication: HIV INFECTION
     Dates: start: 20080101, end: 20080101
  4. DARUNAVIR [Suspect]
     Indication: HIV INFECTION
  5. DARUNAVIR [Suspect]
     Dates: start: 20081226
  6. TENOFOVIR [Suspect]
     Indication: HIV INFECTION
  7. TENOFOVIR [Suspect]
     Dates: start: 20081223
  8. CELEXA [Concomitant]
     Indication: DRUG USE FOR UNKNOWN INDICATION

REACTIONS (1)
  - RASH MORBILLIFORM [None]
